FAERS Safety Report 4485926-5 (Version None)
Quarter: 2004Q4

REPORT INFORMATION
  Report Type: 
  Country: None (occurrence: None)
  Receive Date: 20041026
  Receipt Date: 20040927
  Transmission Date: 20050328
  Serious: Yes (Hospitalization)
  Sender: FDA-Public Use
  Company Number: 04-10-1476

PATIENT
  Age: 54 Year
  Sex: Female

DRUGS (10)
  1. METRONIDAZOLE [Suspect]
     Indication: PROPHYLAXIS
     Dosage: INTRAVENOUS
     Route: 042
  2. .. [Suspect]
  3. ISOFLURANE [Suspect]
     Indication: ANAESTHESIA
     Dosage: INHALATION
     Route: 055
  4. ISOFLURANE [Suspect]
  5. PROPOFOL [Concomitant]
  6. BUPIVACAINE [Concomitant]
  7. DIAMORPHINE [Concomitant]
  8. ROBINUL [Concomitant]
  9. NEOSTIGMINE [Concomitant]
  10. ATRACURIUM [Concomitant]

REACTIONS (1)
  - HEPATIC NECROSIS [None]
